FAERS Safety Report 5979922-6 (Version None)
Quarter: 2008Q4

REPORT INFORMATION
  Report Type: 
  Country: None (occurrence: None)
  Receive Date: 20081205
  Receipt Date: 20081203
  Transmission Date: 20090506
  Serious: Yes (Hospitalization)
  Sender: FDA-Public Use
  Company Number: JP-BRISTOL-MYERS SQUIBB COMPANY-14407340

PATIENT
  Age: 63 Year
  Sex: Female

DRUGS (14)
  1. TAXOL [Suspect]
     Indication: BREAST CANCER
     Route: 041
     Dates: start: 20071015, end: 20071015
  2. KENALOG [Suspect]
     Indication: STOMATITIS
     Route: 061
     Dates: start: 20071211, end: 20071211
  3. AVASTIN [Suspect]
     Indication: BREAST CANCER
     Route: 042
     Dates: start: 20071015, end: 20071015
  4. DEXART [Suspect]
     Indication: PREMEDICATION
     Dosage: TAKEN 4MG FROM 29OCT2007 - UNKNOWN
     Route: 042
     Dates: start: 20071015, end: 20071015
  5. AMLODIN [Concomitant]
     Route: 048
     Dates: start: 20071226
  6. LENDORM [Concomitant]
     Route: 048
  7. MILTAX [Concomitant]
     Route: 062
  8. MUCOSTA [Concomitant]
     Route: 048
     Dates: start: 20080407
  9. TERRA-CORTRIL [Concomitant]
     Route: 062
     Dates: start: 20080303
  10. MAGMITT [Concomitant]
     Route: 048
     Dates: start: 20080122
  11. GLYCYRON [Concomitant]
     Route: 048
  12. RESTAMIN [Concomitant]
     Route: 048
     Dates: start: 20071015
  13. ZANTAC [Concomitant]
     Route: 042
     Dates: start: 20071015
  14. KYTRIL [Concomitant]
     Route: 042
     Dates: start: 20071015

REACTIONS (1)
  - OSTEITIS [None]
